FAERS Safety Report 16791189 (Version 1)
Quarter: 2019Q4

REPORT INFORMATION
  Report Type: Spontaneous
  Country: US (occurrence: US)
  Receive Date: 20190909
  Receipt Date: 20190909
  Transmission Date: 20200122
  Serious: Yes (Disabling)
  Sender: FDA-Public Use
  Company Number: None

PATIENT
  Age: 38 Year
  Sex: Female
  Weight: 65.32 kg

DRUGS (2)
  1. NEXPLANON [Suspect]
     Active Substance: ETONOGESTREL
     Indication: CONTRACEPTION
     Dates: start: 20190814, end: 20190816
  2. LIDOCAINE. [Suspect]
     Active Substance: LIDOCAINE
     Indication: ANAESTHESIA
     Dates: start: 20190814, end: 20190814

REACTIONS (16)
  - Overdose [None]
  - Iatrogenic injury [None]
  - Mood swings [None]
  - Anxiety [None]
  - Incorrect route of product administration [None]
  - Palpitations [None]
  - Dry mouth [None]
  - Chest discomfort [None]
  - Anaesthetic complication [None]
  - Hypoaesthesia [None]
  - Device dislocation [None]
  - Ulnar nerve injury [None]
  - Paraesthesia [None]
  - Dizziness [None]
  - Nausea [None]
  - Pain in extremity [None]
